FAERS Safety Report 16522011 (Version 2)
Quarter: 2019Q3

REPORT INFORMATION
  Report Type: Spontaneous
  Country: SE (occurrence: SE)
  Receive Date: 20190702
  Receipt Date: 20190730
  Transmission Date: 20191004
  Serious: Yes (Other)
  Sender: FDA-Public Use
  Company Number: SE-JNJFOC-20190620790

PATIENT
  Age: 23 Year
  Sex: Female

DRUGS (1)
  1. CONCERTA [Suspect]
     Active Substance: METHYLPHENIDATE HYDROCHLORIDE
     Indication: PRODUCT USED FOR UNKNOWN INDICATION
     Route: 065

REACTIONS (1)
  - Long QT syndrome [Not Recovered/Not Resolved]
